FAERS Safety Report 11629172 (Version 1)
Quarter: 2015Q4

REPORT INFORMATION
  Report Type: Report from Study
  Country: BR (occurrence: BR)
  Receive Date: 20151014
  Receipt Date: 20151014
  Transmission Date: 20160304
  Serious: Yes (Other)
  Sender: FDA-Public Use
  Company Number: BR-BAXALTA-2015BLT002090

PATIENT
  Age: 13 Year
  Sex: Male
  Weight: 73 kg

DRUGS (1)
  1. FEIBA [Suspect]
     Active Substance: ANTI-INHIBITOR COAGULANT COMPLEX
     Indication: HAEMORRHAGE PROPHYLAXIS
     Dosage: 6000 IU, 2X A WEEK
     Dates: start: 20020805

REACTIONS (3)
  - Headache [Recovered/Resolved]
  - Varicella [Unknown]
  - Pyrexia [Unknown]

NARRATIVE: CASE EVENT DATE: 20150928
